FAERS Safety Report 10261614 (Version 2)
Quarter: 2014Q2

REPORT INFORMATION
  Report Type: Spontaneous
  Country: US (occurrence: US)
  Receive Date: 20140626
  Receipt Date: 20140626
  Transmission Date: 20141212
  Serious: No
  Sender: FDA-Public Use
  Company Number: US-MYLANLABS-2014S1009112

PATIENT
  Age: 84 Year
  Sex: Female

DRUGS (1)
  1. ATORVASTATIN CALCIUM TABLETS [Suspect]
     Route: 048

REACTIONS (2)
  - Incorrect dose administered [Recovered/Resolved]
  - No adverse event [Recovered/Resolved]
